FAERS Safety Report 5225244-0 (Version None)
Quarter: 2007Q1

REPORT INFORMATION
  Report Type: 
  Country: None (occurrence: None)
  Receive Date: 20070131
  Receipt Date: 20070119
  Transmission Date: 20070707
  Serious: Yes (Congenital Anomaly, Other)
  Sender: FDA-Public Use
  Company Number: GB-JNJFOC-20061200794

PATIENT

DRUGS (4)
  1. TRAMADOL HCL [Suspect]
     Indication: DRUG EXPOSURE DURING PREGNANCY
     Route: 064
  2. PARACETAMOL [Suspect]
     Indication: DRUG EXPOSURE DURING PREGNANCY
     Route: 064
  3. IMIPRAMINE [Concomitant]
     Route: 064
  4. INTRAUTERINE DEVICE [Concomitant]
     Route: 065

REACTIONS (1)
  - CONGENITAL MULTIPLEX ARTHROGRYPOSIS [None]
